FAERS Safety Report 14457610 (Version 2)
Quarter: 2018Q1

REPORT INFORMATION
  Report Type: Spontaneous
  Country: US (occurrence: US)
  Receive Date: 20180130
  Receipt Date: 20180213
  Transmission Date: 20180509
  Serious: No
  Sender: FDA-Public Use
  Company Number: US-PFIZER INC-2018038953

PATIENT
  Age: 54 Year
  Sex: Female
  Weight: 116 kg

DRUGS (1)
  1. IBRANCE [Suspect]
     Active Substance: PALBOCICLIB
     Indication: BREAST CANCER METASTATIC
     Dosage: 125 MG, CYCLIC (DAYS 1 TO 21 EVERY 28 DAYS/ D 1-21 Q 28 DAYS)
     Route: 048
     Dates: start: 20180117

REACTIONS (6)
  - Abdominal pain [Recovered/Resolved]
  - Rash [Unknown]
  - Nausea [Recovering/Resolving]
  - Pruritus [Unknown]
  - Vomiting [Unknown]
  - Alopecia [Unknown]

NARRATIVE: CASE EVENT DATE: 201801
